FAERS Safety Report 18042169 (Version 1)
Quarter: 2020Q3

REPORT INFORMATION
  Report Type: Spontaneous
  Country: SE (occurrence: SE)
  Receive Date: 20200720
  Receipt Date: 20200720
  Transmission Date: 20201103
  Serious: Yes (Other)
  Sender: FDA-Public Use
  Company Number: SE-009507513-2007SWE005432

PATIENT
  Age: 18 Year
  Sex: Female
  Weight: 78 kg

DRUGS (1)
  1. NUVARING [Suspect]
     Active Substance: ETHINYL ESTRADIOL\ETONOGESTREL
     Indication: CONTRACEPTION
     Dosage: 0.120 MG/0.015 MG PER 24 H
     Dates: start: 20110726, end: 20120511

REACTIONS (4)
  - Vulvovaginal dryness [Recovering/Resolving]
  - Vulvovaginal candidiasis [Recovering/Resolving]
  - Vulvovaginal discomfort [Recovering/Resolving]
  - Dyspareunia [Recovering/Resolving]

NARRATIVE: CASE EVENT DATE: 20120104
